FAERS Safety Report 9357616 (Version 1)
Quarter: 2013Q2

REPORT INFORMATION
  Report Type: Report from Study
  Country: CA (occurrence: CA)
  Receive Date: 20130620
  Receipt Date: 20130620
  Transmission Date: 20140414
  Serious: Yes (Other)
  Sender: FDA-Public Use
  Company Number: CA-JNJFOC-20130611030

PATIENT
  Age: 71 Year
  Sex: Male

DRUGS (3)
  1. SIMPONI [Suspect]
     Indication: RHEUMATOID ARTHRITIS
     Dosage: 3 YEARS
     Route: 058
  2. METHOTREXATE [Concomitant]
  3. METHOTREXATE [Concomitant]

REACTIONS (2)
  - Cataract operation [Recovered/Resolved]
  - Drug effect decreased [Unknown]
